FAERS Safety Report 7309173-4 (Version None)
Quarter: 2011Q1

REPORT INFORMATION
  Report Type: 
  Country: None (occurrence: None)
  Receive Date: 20110211
  Receipt Date: 20110201
  Transmission Date: 20110831
  Serious: Yes (Death, Life-Threatening, Other)
  Sender: FDA-Public Use
  Company Number: GB-ACCORD-008114

PATIENT
  Age: 39 Year
  Sex: Male

DRUGS (4)
  1. HEPARIN [Suspect]
     Dosage: INTRAVENOUS (NOT OTHERWISE SPECIFEID)
     Route: 042
  2. CARBOPLATIN [Suspect]
     Indication: TESTICULAR TERATOMA BENIGN
     Dosage: INTRAVENOUS(NOT OTHERWISE SPECIFIED)
     Route: 042
  3. ETOPOSIDE [Suspect]
     Indication: TESTICULAR TERATOMA BENIGN
     Dosage: INTRAVENOUS (NOT OTHERWISE SPECIFIED)
     Route: 042
  4. IFOSFAMIDE [Suspect]
     Indication: TESTICULAR TERATOMA BENIGN

REACTIONS (9)
  - HAEMORRHAGE INTRACRANIAL [None]
  - HEADACHE [None]
  - SUBARACHNOID HAEMORRHAGE [None]
  - DRUG RESISTANCE [None]
  - HAEMODIALYSIS [None]
  - SOMNOLENCE [None]
  - HYPERTENSION [None]
  - RENAL FAILURE [None]
  - THROMBOCYTOPENIA [None]
